FAERS Safety Report 10398164 (Version 1)
Quarter: 2014Q3

REPORT INFORMATION
  Report Type: Spontaneous
  Country: FI (occurrence: None)
  Receive Date: 20140818
  Receipt Date: 20140818
  Transmission Date: 20150326
  Serious: Yes (Death)
  Sender: FDA-Public Use
  Company Number: KAD201408-000917

PATIENT
  Age: 3 Year

DRUGS (4)
  1. THALIDOMIDE (THALIDOMIDE) [Suspect]
     Active Substance: THALIDOMIDE
     Indication: BRAIN STEM GLIOMA
     Route: 048
  2. ETOPOSIDE (ETOPOSIDE) [Suspect]
     Active Substance: ETOPOSIDE
     Indication: BRAIN STEM GLIOMA
  3. CELECOXIB (CELECOXIB) [Suspect]
     Active Substance: CELECOXIB
     Indication: BRAIN STEM GLIOMA
  4. TOPOTECAN [Suspect]
     Active Substance: TOPOTECAN\TOPOTECAN HYDROCHLORIDE
     Indication: BRAIN STEM GLIOMA
     Dosage: INFUSION, 0.5 MG/ME2, INTRAVENOUS
     Route: 042

REACTIONS (1)
  - Therapeutic response changed [None]
